FAERS Safety Report 20070116 (Version 1)
Quarter: 2021Q4

REPORT INFORMATION
  Report Type: Report from Study
  Country: US (occurrence: US)
  Receive Date: 20211115
  Receipt Date: 20211115
  Transmission Date: 20220303
  Serious: Yes (Other)
  Sender: FDA-Public Use
  Company Number: US-EVEREST MEDICINES II (HK) LIMITED-2021-0556125

PATIENT
  Age: 64 Year
  Sex: Female

DRUGS (1)
  1. SACITUZUMAB GOVITECAN [Suspect]
     Active Substance: SACITUZUMAB GOVITECAN
     Indication: Product used for unknown indication
     Dosage: UNK
     Route: 042
     Dates: start: 20210901

REACTIONS (7)
  - Mania [Recovering/Resolving]
  - Paraplegia [Unknown]
  - Alopecia [Recovering/Resolving]
  - Hypophagia [Recovering/Resolving]
  - Gastrointestinal hypomotility [Unknown]
  - Insomnia [Recovering/Resolving]
  - Peripheral swelling [Unknown]

NARRATIVE: CASE EVENT DATE: 20210901
